FAERS Safety Report 12009519 (Version 1)
Quarter: 2016Q1

REPORT INFORMATION
  Report Type: Spontaneous
  Country: US (occurrence: US)
  Receive Date: 20160205
  Receipt Date: 20160205
  Transmission Date: 20160526
  Serious: No
  Sender: FDA-Public Use
  Company Number: US-ASTRAZENECA-2010BM09572

PATIENT
  Sex: Female
  Weight: 65.8 kg

DRUGS (2)
  1. BYETTA [Suspect]
     Active Substance: EXENATIDE
     Indication: TYPE 2 DIABETES MELLITUS
     Route: 058
  2. SYMLIN [Concomitant]
     Active Substance: PRAMLINTIDE ACETATE
     Indication: TYPE 2 DIABETES MELLITUS

REACTIONS (3)
  - Migraine [Recovered/Resolved]
  - Nausea [Recovered/Resolved]
  - Vomiting [Recovered/Resolved]
